FAERS Safety Report 7486710-0 (Version None)
Quarter: 2011Q2

REPORT INFORMATION
  Report Type: 
  Country: None (occurrence: None)
  Receive Date: 20110517
  Receipt Date: 20100901
  Transmission Date: 20111010
  Serious: No
  Sender: FDA-Public Use
  Company Number: US-NOVEN-ALL1-2010-04667

PATIENT
  Sex: Male
  Weight: 68.027 kg

DRUGS (3)
  1. DAYTRANA [Suspect]
     Dosage: 10 MG, 1X/DAY:QD
     Route: 062
     Dates: start: 20070101, end: 20070101
  2. DAYTRANA [Suspect]
     Dosage: 10 MG, 1X/DAY:QD
     Route: 062
     Dates: start: 20100901
  3. RITALIN [Concomitant]
     Dosage: 10 MG, 1X/DAY:QD
     Route: 048

REACTIONS (8)
  - APPLICATION SITE IRRITATION [None]
  - MALAISE [None]
  - EXPIRED DRUG ADMINISTERED [None]
  - DRUG EFFECT INCREASED [None]
  - FATIGUE [None]
  - MUSCULOSKELETAL PAIN [None]
  - NAUSEA [None]
  - APPLICATION SITE ERYTHEMA [None]
